FAERS Safety Report 10079715 (Version 2)
Quarter: 2014Q2

REPORT INFORMATION
  Report Type: Report from Study
  Country: GB (occurrence: GB)
  Receive Date: 20140415
  Receipt Date: 20140501
  Transmission Date: 20141212
  Serious: Yes (Hospitalization)
  Sender: FDA-Public Use
  Company Number: GB-VERTEX PHARMACEUTICALS INC-2014-001890

PATIENT
  Age: 56 Year
  Sex: Male

DRUGS (1)
  1. VX-950 (TELAPREVIR) [Suspect]
     Indication: PRODUCT USED FOR UNKNOWN INDICATION
     Dosage: UNK
     Dates: start: 20140328, end: 20140331

REACTIONS (7)
  - Rash [Recovering/Resolving]
  - Nasal discomfort [Unknown]
  - Ear pain [Unknown]
  - Oropharyngeal pain [Unknown]
  - Anal pruritus [Unknown]
  - Anal haemorrhage [Unknown]
  - Proctalgia [Unknown]
